FAERS Safety Report 8415509-3 (Version None)
Quarter: 2012Q2

REPORT INFORMATION
  Report Type: 
  Country: None (occurrence: None)
  Receive Date: 20120606
  Receipt Date: 20120525
  Transmission Date: 20120825
  Serious: Yes (Hospitalization, Other)
  Sender: FDA-Public Use
  Company Number: FR-SANOFI-AVENTIS-2012SA023413

PATIENT
  Age: 55 Year
  Sex: Male
  Weight: 80 kg

DRUGS (1)
  1. JEVTANA KIT [Suspect]
     Indication: PROSTATE CANCER RECURRENT
     Route: 041
     Dates: start: 20120402, end: 20120402

REACTIONS (2)
  - ACUTE CORONARY SYNDROME [None]
  - CHEST PAIN [None]
